FAERS Safety Report 5937645-3 (Version None)
Quarter: 2008Q4

REPORT INFORMATION
  Report Type: 
  Country: None (occurrence: None)
  Receive Date: 20081031
  Receipt Date: 20081022
  Transmission Date: 20090506
  Serious: Yes (Hospitalization)
  Sender: FDA-Public Use
  Company Number: ES-JNJFOC-20080903728

PATIENT
  Age: 52 Year
  Sex: Female
  Weight: 73.03 kg

DRUGS (1)
  1. REMICADE [Suspect]
     Indication: RHEUMATOID ARTHRITIS
     Dosage: 3 OR 4 YEARS OF TREATMENT
     Route: 042

REACTIONS (2)
  - ARTHRITIS BACTERIAL [None]
  - DEVICE RELATED INFECTION [None]
